FAERS Safety Report 5019194-2 (Version None)
Quarter: 2006Q2

REPORT INFORMATION
  Report Type: 
  Country: None (occurrence: None)
  Receive Date: 20060531
  Receipt Date: 20060511
  Transmission Date: 20061013
  Serious: Yes (Hospitalization)
  Sender: FDA-Public Use
  Company Number: DSA_28199_2006

PATIENT
  Age: 59 Year
  Sex: Female

DRUGS (3)
  1. DILTIAZEM [Suspect]
     Dosage: 5.76 G ONCE PO
     Route: 048
  2. ZOLPIDEM TARTRATE [Suspect]
     Dosage: 120 MG ONCE PO
     Route: 048
  3. LORAZEPAM [Suspect]
     Dosage: 4 MG ONCE PO
     Route: 048

REACTIONS (15)
  - BLOOD BICARBONATE DECREASED [None]
  - BLOOD CALCIUM INCREASED [None]
  - BLOOD GLUCOSE INCREASED [None]
  - CALCIUM IONISED INCREASED [None]
  - CARDIAC INDEX INCREASED [None]
  - DRUG TOXICITY [None]
  - HYPERINSULINAEMIA [None]
  - HYPOTENSION [None]
  - MEAN ARTERIAL PRESSURE INCREASED [None]
  - OVERDOSE [None]
  - PCO2 DECREASED [None]
  - SINUS BRADYCARDIA [None]
  - SOMNOLENCE [None]
  - THERAPY NON-RESPONDER [None]
  - VASCULAR RESISTANCE SYSTEMIC INCREASED [None]
